FAERS Safety Report 4553086-8 (Version None)
Quarter: 2005Q1

REPORT INFORMATION
  Report Type: 
  Country: None (occurrence: None)
  Receive Date: 20050114
  Receipt Date: 20050104
  Transmission Date: 20050727
  Serious: Yes (Hospitalization)
  Sender: FDA-Public Use
  Company Number: FR-JNJFOC-20040401176

PATIENT
  Sex: Female
  Weight: 55 kg

DRUGS (3)
  1. EPITOMAX [Suspect]
     Indication: EPILEPSY
     Route: 049
  2. PHENOBARBITAL TAB [Concomitant]
     Route: 049
  3. KEPPRA [Concomitant]
     Route: 049

REACTIONS (9)
  - CAESAREAN SECTION [None]
  - DRUG EXPOSURE DURING PREGNANCY [None]
  - ECLAMPSIA [None]
  - EPILEPSY [None]
  - FOETAL GROWTH RETARDATION [None]
  - PRE-ECLAMPSIA [None]
  - PREGNANCY [None]
  - PREMATURE LABOUR [None]
  - TOXOPLASMOSIS [None]
